FAERS Safety Report 12343188 (Version 4)
Quarter: 2016Q2

REPORT INFORMATION
  Report Type: Spontaneous
  Country: US (occurrence: US)
  Receive Date: 20160506
  Receipt Date: 20160620
  Transmission Date: 20160815
  Serious: Yes (Other)
  Sender: FDA-Public Use
  Company Number: US-PFIZER INC-2016234526

PATIENT
  Age: 64 Year
  Sex: Male

DRUGS (2)
  1. LYRICA [Suspect]
     Active Substance: PREGABALIN
     Indication: BURNING SENSATION
  2. LYRICA [Suspect]
     Active Substance: PREGABALIN
     Indication: NEURALGIA
     Dosage: 75MG CAPSULES, 1 IN THE MORNING AND 1 IN THE EVENING
     Route: 048
     Dates: start: 201111

REACTIONS (3)
  - Intentional product misuse [Not Recovered/Not Resolved]
  - Spinal deformity [Unknown]
  - Spinal column stenosis [Unknown]
